FAERS Safety Report 7358419-5 (Version None)
Quarter: 2011Q1

REPORT INFORMATION
  Report Type: 
  Country: None (occurrence: None)
  Receive Date: 20110317
  Receipt Date: 20110315
  Transmission Date: 20110831
  Serious: Yes (Other)
  Sender: FDA-Public Use
  Company Number: NZ-PFIZER INC-2011023475

PATIENT
  Age: 26 Year
  Sex: Male

DRUGS (9)
  1. CHAMPIX [Suspect]
     Indication: SMOKING CESSATION THERAPY
     Dosage: 0.5 MG, 2X/DAY
     Route: 048
     Dates: start: 20100214
  2. CHAMPIX [Suspect]
     Dosage: 1 MG, 2X/DAY
     Dates: end: 20101228
  3. BENZTROPEINE [Concomitant]
     Indication: EXTRAPYRAMIDAL DISORDER
     Dosage: 2 MG, 2X/DAY
     Route: 048
     Dates: start: 20100507
  4. CLONAZEPAM [Concomitant]
     Indication: PSYCHOTIC DISORDER
     Dosage: 2 MG, 1X/DAY, AT NIGHT
     Route: 048
     Dates: start: 20100506
  5. ARIPIPRAZOLE [Concomitant]
     Indication: PSYCHOTIC DISORDER
     Dosage: 30 MG, 1X/DAY
     Route: 048
     Dates: start: 20101021
  6. VALPROATE SODIUM [Concomitant]
     Indication: PSYCHOTIC DISORDER
     Dosage: 750MG IN MORNING AND 1000MG AT NIGHT
     Route: 048
     Dates: start: 20101108
  7. ZOPICLONE [Concomitant]
     Dosage: 15 MG, 1X/DAY, AT NIGHT
     Dates: start: 20101108
  8. TEMAZEPAM [Concomitant]
     Dosage: 20 MG, 1X/DAY, AT NIGHT
     Dates: start: 20101108
  9. OLANZAPINE [Concomitant]
     Indication: PSYCHOTIC DISORDER
     Dosage: 10 MG, 1X/DAY, AT NIGHT
     Route: 048
     Dates: start: 20101102

REACTIONS (5)
  - AGITATION [None]
  - PSYCHOTIC DISORDER [None]
  - MOOD SWINGS [None]
  - AGGRESSION [None]
  - PHYSICAL ASSAULT [None]
